FAERS Safety Report 6919553-4 (Version None)
Quarter: 2010Q3

REPORT INFORMATION
  Report Type: 
  Country: None (occurrence: None)
  Receive Date: 20100810
  Receipt Date: 20100810
  Transmission Date: 20110219
  Serious: Yes (Hospitalization)
  Sender: FDA-Public Use
  Company Number: None

PATIENT
  Sex: Male
  Weight: 33.2 kg

DRUGS (2)
  1. GENTAMICIN [Suspect]
     Indication: CYSTIC FIBROSIS
     Dosage: 100 - 120 MG Q8H IV
     Route: 042
     Dates: start: 20100721, end: 20100803
  2. CEFEPIME [Suspect]
     Indication: CYSTIC FIBROSIS
     Dosage: 1660 MG Q8H IV
     Route: 042
     Dates: start: 20100721, end: 20100803

REACTIONS (3)
  - HAEMODIALYSIS [None]
  - RENAL FAILURE ACUTE [None]
  - TUBULOINTERSTITIAL NEPHRITIS [None]
